FAERS Safety Report 26133982 (Version 2)
Quarter: 2025Q4

REPORT INFORMATION
  Report Type: Report from Study
  Country: CA (occurrence: CA)
  Receive Date: 20251209
  Receipt Date: 20251222
  Transmission Date: 20260117
  Serious: Yes (Hospitalization, Other)
  Sender: NOVARTIS
  Company Number: CA-002147023-NVSC2025CA187560

PATIENT
  Age: 71 Year
  Sex: Female

DRUGS (2)
  1. KISQALI [Suspect]
     Active Substance: RIBOCICLIB SUCCINATE
     Indication: Breast cancer metastatic
     Dosage: 600 MG, QD
     Route: 048
     Dates: start: 20250904
  2. KISQALI [Suspect]
     Active Substance: RIBOCICLIB SUCCINATE
     Dosage: 200 MG, QOD (EVERY OTHER DAY)
     Route: 048

REACTIONS (14)
  - Cardiac failure [Unknown]
  - Weight decreased [Unknown]
  - Blood urea increased [Unknown]
  - Fatigue [Unknown]
  - Blood creatinine increased [Unknown]
  - Metabolic dysfunction-associated steatohepatitis [Unknown]
  - Hepatic cirrhosis [Unknown]
  - Ascites [Recovering/Resolving]
  - Heart failure with preserved ejection fraction [Unknown]
  - Tricuspid valve incompetence [Unknown]
  - Renal failure [Recovering/Resolving]
  - Pulmonary hypertension [Unknown]
  - Cardiac failure congestive [Recovering/Resolving]
  - Eastern Cooperative Oncology Group performance status abnormal [Recovering/Resolving]
